FAERS Safety Report 9338396 (Version 1)
Quarter: 2013Q2

REPORT INFORMATION
  Report Type: Spontaneous
  Country: US (occurrence: US)
  Receive Date: 20130610
  Receipt Date: 20130610
  Transmission Date: 20140414
  Serious: No
  Sender: FDA-Public Use
  Company Number: US-PFIZER INC-2013174090

PATIENT
  Age: 55 Year
  Sex: Female
  Weight: 116 kg

DRUGS (12)
  1. LYRICA [Suspect]
     Indication: FIBROMYALGIA
     Dosage: 150 MG, 2X/DAY
     Dates: start: 2012, end: 201304
  2. LYRICA [Suspect]
     Indication: NEUROPATHY PERIPHERAL
  3. LYRICA [Suspect]
     Indication: RESTLESS LEGS SYNDROME
  4. LEVOTHYROXINE [Concomitant]
     Indication: HYPOTHYROIDISM
     Dosage: 137 UG, 1X/DAY
  5. ATENOLOL [Concomitant]
     Indication: HYPERTENSION
     Dosage: 50 MG, 1X/DAY
  6. SYMBICORT [Concomitant]
     Indication: SARCOIDOSIS
     Dosage: UNK, 2X/DAY
  7. NEXIUM [Concomitant]
     Indication: GASTROOESOPHAGEAL REFLUX DISEASE
     Dosage: 40 MG, 1X/DAY
  8. LAMICTAL [Concomitant]
     Indication: BIPOLAR DISORDER
     Dosage: 250 MG, 1X/DAY
  9. MOBIC [Concomitant]
     Indication: OSTEOARTHRITIS
     Dosage: 15 MG, 1X/DAY
  10. MOBIC [Concomitant]
     Indication: SPINAL COLUMN STENOSIS
  11. ULTRAM [Concomitant]
     Indication: SPINAL COLUMN STENOSIS
     Dosage: 50 MG (UPTO FOUR TIMES A DAY) , AS NEEDED
  12. FLEXERIL [Concomitant]
     Indication: PAIN
     Dosage: 10 MG, EVERY EIGHT HOURS

REACTIONS (4)
  - Malaise [Not Recovered/Not Resolved]
  - Pain [Not Recovered/Not Resolved]
  - Neuropathy peripheral [Not Recovered/Not Resolved]
  - Hyperhidrosis [Not Recovered/Not Resolved]
